FAERS Safety Report 17292239 (Version 1)
Quarter: 2020Q1

REPORT INFORMATION
  Report Type: Report from Study
  Country: US (occurrence: US)
  Receive Date: 20200121
  Receipt Date: 20200121
  Transmission Date: 20200409
  Serious: Yes (Hospitalization)
  Sender: FDA-Public Use
  Company Number: US-BAYER-2019-226887

PATIENT
  Age: 50 Year
  Sex: Female

DRUGS (1)
  1. STIVARGA [Suspect]
     Active Substance: REGORAFENIB
     Indication: COLON CANCER
     Dosage: 80 MG, QD
     Route: 048

REACTIONS (4)
  - Dry skin [Recovered/Resolved]
  - Rash papular [Recovered/Resolved]
  - Off label use [None]
  - Pyrexia [Recovered/Resolved]

NARRATIVE: CASE EVENT DATE: 20191206
